FAERS Safety Report 21559098 (Version 1)
Quarter: 2022Q4

REPORT INFORMATION
  Report Type: Spontaneous
  Country: DZ (occurrence: DZ)
  Receive Date: 20221107
  Receipt Date: 20221107
  Transmission Date: 20230113
  Serious: Yes (Life-Threatening, Hospitalization)
  Sender: FDA-Public Use
  Company Number: DZ-AMGEN-DZASP2022186712

PATIENT
  Age: 70 Year
  Sex: Male
  Weight: 70 kg

DRUGS (4)
  1. PEGFILGRASTIM [Suspect]
     Active Substance: PEGFILGRASTIM
     Indication: Febrile neutropenia
     Dosage: 6 MILLIGRAM (24 HOURS AFTER THE CHEMOTHERAPY CYCLE)
     Route: 058
     Dates: start: 20221018, end: 20221018
  2. NEUPOGEN [Suspect]
     Active Substance: FILGRASTIM
     Indication: Febrile neutropenia
     Dosage: 48 INTERNATIONAL UNIT (5 DAYS, 24 HOURS AFTER THE CHEMOTHERAPY CYCLE)
     Route: 058
     Dates: start: 20220920, end: 20220924
  3. CARBOPLATIN [Suspect]
     Active Substance: CARBOPLATIN
     Indication: Non-small cell lung cancer
     Dosage: 450 MILLIGRAM, Q3WK
     Route: 065
     Dates: start: 20220919, end: 20221017
  4. PEMETREXED [Suspect]
     Active Substance: PEMETREXED
     Indication: Non-small cell lung cancer
     Dosage: 450 MILLIGRAM, Q3WK
     Route: 065
     Dates: start: 20220919, end: 20221017

REACTIONS (1)
  - Aplasia [Not Recovered/Not Resolved]

NARRATIVE: CASE EVENT DATE: 20221023
